FAERS Safety Report 4376269-9 (Version None)
Quarter: 2004Q2

REPORT INFORMATION
  Report Type: 
  Country: None (occurrence: None)
  Receive Date: 20040611
  Receipt Date: 20031121
  Transmission Date: 20050107
  Serious: Yes (Hospitalization, Disabling)
  Sender: FDA-Public Use
  Company Number: US-MERCK-0311USA02534

PATIENT
  Age: 62 Year
  Sex: Male
  Weight: 76 kg

DRUGS (5)
  1. LIPITOR [Concomitant]
     Indication: BLOOD CHOLESTEROL INCREASED
     Route: 065
     Dates: start: 20010318
  2. REMICADE [Concomitant]
     Indication: RHEUMATOID ARTHRITIS
     Route: 065
     Dates: start: 19980101
  3. METHOTREXATE [Concomitant]
     Indication: RHEUMATOID ARTHRITIS
     Route: 065
     Dates: start: 19850101, end: 19890101
  4. METHOTREXATE [Concomitant]
     Route: 065
     Dates: start: 20020101
  5. VIOXX [Suspect]
     Indication: RHEUMATOID ARTHRITIS
     Route: 048
     Dates: start: 19991101, end: 20021201

REACTIONS (7)
  - ANXIETY [None]
  - CEREBROVASCULAR ACCIDENT [None]
  - EMOTIONAL DISTRESS [None]
  - INJURY [None]
  - MYOCARDIAL INFARCTION [None]
  - STRESS SYMPTOMS [None]
  - TRANSIENT ISCHAEMIC ATTACK [None]
